FAERS Safety Report 22596400 (Version 1)
Quarter: 2023Q2

REPORT INFORMATION
  Report Type: Spontaneous
  Country: US (occurrence: None)
  Receive Date: 20230613
  Receipt Date: 20230613
  Transmission Date: 20230721
  Serious: Yes (Other)
  Sender: FDA-Public Use
  Company Number: None

PATIENT
  Sex: Male

DRUGS (7)
  1. ALECENSA [Suspect]
     Active Substance: ALECTINIB HYDROCHLORIDE
     Indication: Lung neoplasm malignant
     Dosage: TAKE 4 CAPSULES (600 MG TOTAL) BY MOUTH IN THE MORNING AND 4 CAPSULES (600 MG TOTAL) IN THE ?EVENING
     Route: 048
     Dates: start: 20230519
  2. AMLODIPINE [Concomitant]
     Active Substance: AMLODIPINE BESYLATE
  3. ASPIRIN [Concomitant]
     Active Substance: ASPIRIN
  4. ATORVASTATIN [Concomitant]
     Active Substance: ATORVASTATIN
  5. CARVEDILOL [Concomitant]
     Active Substance: CARVEDILOL
  6. REPAGLINIDE [Concomitant]
     Active Substance: REPAGLINIDE
  7. VALSARTAN [Concomitant]
     Active Substance: VALSARTAN

REACTIONS (1)
  - Thrombosis [None]
